FAERS Safety Report 5025639-4 (Version None)
Quarter: 2006Q2

REPORT INFORMATION
  Report Type: 
  Country: None (occurrence: None)
  Receive Date: 20060614
  Receipt Date: 20060524
  Transmission Date: 20061013
  Serious: Yes (Other)
  Sender: FDA-Public Use
  Company Number: US-AVENTIS-200614715US

PATIENT
  Age: 14 Year
  Sex: Male

DRUGS (1)
  1. BENZACLIN [Suspect]
     Indication: ACNE
     Dosage: DOSE: UNK
     Route: 061
     Dates: start: 20040101, end: 20040101

REACTIONS (6)
  - ARNOLD-CHIARI MALFORMATION [None]
  - DEAFNESS NEUROSENSORY [None]
  - DEAFNESS UNILATERAL [None]
  - HAEMANGIOMA [None]
  - HEADACHE [None]
  - TINNITUS [None]
